FAERS Safety Report 18114344 (Version 1)
Quarter: 2020Q3

REPORT INFORMATION
  Report Type: Spontaneous
  Country: US (occurrence: US)
  Receive Date: 20200805
  Receipt Date: 20200805
  Transmission Date: 20201103
  Serious: Yes (Other)
  Sender: FDA-Public Use
  Company Number: US-BAYER-2020-153304

PATIENT
  Sex: Male

DRUGS (8)
  1. SOMA [Concomitant]
     Active Substance: CARISOPRODOL
  2. ASPIRIN (PAIN AND FEVER) [Suspect]
     Active Substance: ASPIRIN
  3. SUBOXONE [Concomitant]
     Active Substance: BUPRENORPHINE HYDROCHLORIDE\NALOXONE HYDROCHLORIDE
  4. LIPITOR [Concomitant]
     Active Substance: ATORVASTATIN CALCIUM
  5. AVANZA [Concomitant]
     Active Substance: MIRTAZAPINE
  6. METHADONE [Concomitant]
     Active Substance: METHADONE HYDROCHLORIDE
  7. ABILIFY [Concomitant]
     Active Substance: ARIPIPRAZOLE
  8. PERCOCET [Concomitant]
     Active Substance: ACETAMINOPHEN\OXYCODONE HYDROCHLORIDE

REACTIONS (11)
  - Cardiac disorder [Unknown]
  - Alcoholism [Unknown]
  - Depression [Unknown]
  - Back pain [Unknown]
  - Disorientation [Unknown]
  - Dementia [Unknown]
  - Vascular graft [Unknown]
  - Dependence [Unknown]
  - Sleep apnoea syndrome [Unknown]
  - Drug abuse [Unknown]
  - Osteoarthritis [Unknown]

NARRATIVE: CASE EVENT DATE: 2004
